FAERS Safety Report 9681774 (Version 1)
Quarter: 2013Q4

REPORT INFORMATION
  Report Type: Spontaneous
  Country: US (occurrence: US)
  Receive Date: 20131111
  Receipt Date: 20131111
  Transmission Date: 20140711
  Serious: Yes (Other)
  Sender: FDA-Public Use
  Company Number: US-PFIZER INC-2013319599

PATIENT
  Sex: Female

DRUGS (2)
  1. ZOLOFT [Suspect]
     Indication: DEPRESSION
     Dosage: UNK
  2. SERTRALINE HCL [Suspect]
     Indication: DEPRESSION
     Dosage: UNK
     Dates: start: 2005, end: 2007

REACTIONS (2)
  - Coeliac disease [Unknown]
  - Malaise [Unknown]
